FAERS Safety Report 5702078-1 (Version None)
Quarter: 2008Q2

REPORT INFORMATION
  Report Type: 
  Country: None (occurrence: None)
  Receive Date: 20080411
  Receipt Date: 20070810
  Transmission Date: 20081010
  Serious: No
  Sender: FDA-Public Use
  Company Number: US-ABBOTT-07P-163-0378683-00

PATIENT
  Sex: Male
  Weight: 113.4 kg

DRUGS (4)
  1. DEPAKOTE [Suspect]
     Indication: CONVULSION
     Route: 048
  2. DEPAKOTE [Suspect]
     Indication: EPILEPSY
  3. LAMOTRIGINE [Concomitant]
     Indication: EPILEPSY
  4. ZONISAMIDE [Concomitant]
     Indication: EPILEPSY

REACTIONS (2)
  - CONVULSION [None]
  - DRUG INEFFECTIVE [None]
